FAERS Safety Report 11923399 (Version 3)
Quarter: 2016Q1

REPORT INFORMATION
  Report Type: Spontaneous
  Country: KR (occurrence: KR)
  Receive Date: 20160118
  Receipt Date: 20160128
  Transmission Date: 20160526
  Serious: No
  Sender: FDA-Public Use
  Company Number: KR-009507513-1512KOR012635

PATIENT
  Age: 29 Year
  Sex: Female

DRUGS (2)
  1. ELOCOM [Suspect]
     Active Substance: MOMETASONE FUROATE
     Indication: PRURITUS
  2. ELOCOM [Suspect]
     Active Substance: MOMETASONE FUROATE
     Indication: DERMATITIS ATOPIC
     Dosage: 30 (UNITS UNSPECIFIED), QD
     Route: 061
     Dates: start: 20151222, end: 20151222

REACTIONS (2)
  - Urticaria [Recovered/Resolved]
  - Angioedema [Recovered/Resolved]

NARRATIVE: CASE EVENT DATE: 20151222
